FAERS Safety Report 14665597 (Version 5)
Quarter: 2018Q3

REPORT INFORMATION
  Report Type: Report from Study
  Country: US (occurrence: US)
  Receive Date: 20180321
  Receipt Date: 20180810
  Transmission Date: 20181010
  Serious: Yes (Other)
  Sender: FDA-Public Use
  Company Number: US-ACTELION-A-NJ2017-162398

PATIENT
  Age: 65 Year
  Sex: Female

DRUGS (5)
  1. UPTRAVI [Suspect]
     Active Substance: SELEXIPAG
     Indication: PULMONARY ARTERIAL HYPERTENSION
     Dosage: 400 MCG QAM AND 600 MCG QPM
     Route: 048
     Dates: start: 20171005
  2. UPTRAVI [Suspect]
     Active Substance: SELEXIPAG
     Dosage: 1200 MCG, BID
     Route: 048
  3. UPTRAVI [Suspect]
     Active Substance: SELEXIPAG
     Dosage: 800 MCG, BID
     Route: 048
  4. OPSUMIT [Suspect]
     Active Substance: MACITENTAN
     Indication: PULMONARY ARTERIAL HYPERTENSION
     Dosage: 10 MG, QD
     Route: 048
     Dates: start: 20131224, end: 201802
  5. UPTRAVI [Suspect]
     Active Substance: SELEXIPAG
     Dosage: 1400 MCG, BID
     Route: 048

REACTIONS (14)
  - Pulmonary hypertension [Unknown]
  - Eye swelling [Recovering/Resolving]
  - Hepatic cirrhosis [Unknown]
  - Abdominal distension [Unknown]
  - Diarrhoea [Unknown]
  - Fluid retention [Unknown]
  - Headache [Unknown]
  - Swelling [Unknown]
  - Abdominal lymphadenopathy [Unknown]
  - Peripheral swelling [Unknown]
  - Pain in jaw [Unknown]
  - Flushing [Unknown]
  - Weight decreased [Unknown]
  - Weight increased [Unknown]
